FAERS Safety Report 12043725 (Version 1)
Quarter: 2016Q1

REPORT INFORMATION
  Report Type: Report from Study
  Country: US (occurrence: US)
  Receive Date: 20160208
  Receipt Date: 20160208
  Transmission Date: 20160526
  Serious: No
  Sender: FDA-Public Use
  Company Number: US-ABBVIE-15P-163-1343832-00

PATIENT
  Sex: Female

DRUGS (1)
  1. HUMIRA [Suspect]
     Active Substance: ADALIMUMAB
     Indication: CROHN^S DISEASE
     Route: 058

REACTIONS (7)
  - Fatigue [Unknown]
  - Nausea [Unknown]
  - Sinus disorder [Unknown]
  - Chest injury [Unknown]
  - Abdominal pain upper [Unknown]
  - Rash [Recovering/Resolving]
  - Pain [Unknown]
